FAERS Safety Report 23298818 (Version 1)
Quarter: 2023Q4

REPORT INFORMATION
  Report Type: Spontaneous
  Country: US (occurrence: US)
  Receive Date: 20231215
  Receipt Date: 20231215
  Transmission Date: 20240110
  Serious: No
  Sender: FDA-Public Use
  Company Number: US-HALEON-USCH2023AMR062703

PATIENT
  Age: 46 Year
  Sex: Female

DRUGS (2)
  1. TERBINAFINE [Suspect]
     Active Substance: TERBINAFINE
     Indication: Psoriasis
     Dosage: UNK
     Route: 061
     Dates: start: 2023
  2. TERBINAFINE [Suspect]
     Active Substance: TERBINAFINE
     Indication: Psoriatic arthropathy

REACTIONS (1)
  - Pain in extremity [Unknown]

NARRATIVE: CASE EVENT DATE: 20230701
